FAERS Safety Report 9911695 (Version 2)
Quarter: 2014Q2

REPORT INFORMATION
  Report Type: Spontaneous
  Country: US (occurrence: US)
  Receive Date: 20140219
  Receipt Date: 20140506
  Transmission Date: 20141212
  Serious: Yes (Hospitalization, Other)
  Sender: FDA-Public Use
  Company Number: US-GILEAD-2014-0094917

PATIENT
  Sex: Female

DRUGS (13)
  1. LETAIRIS [Suspect]
     Indication: PULMONARY HYPERTENSION
     Dosage: 10 MG, QD
     Route: 065
     Dates: start: 201212
  2. LETAIRIS [Suspect]
     Indication: CONNECTIVE TISSUE DISORDER
  3. ADVAIR [Concomitant]
     Dosage: 1 DF, BID
  4. CALTRATE + VITAMIN D [Concomitant]
  5. COMBIVENT [Concomitant]
  6. FOSAMAX [Concomitant]
     Dosage: UNK, Q1WK
  7. LASIX                              /00032601/ [Concomitant]
     Dosage: 80 DF, QD
  8. NEXIUM                             /01479302/ [Concomitant]
     Dosage: 40 DF, QD
  9. OXYGEN [Concomitant]
  10. PREDNISONE [Concomitant]
     Dosage: 10 DF, QD
  11. SPIRONOLACTONE [Concomitant]
     Dosage: 25 DF, QD
  12. SPIRIVA [Concomitant]
  13. WARFARIN [Concomitant]

REACTIONS (1)
  - Pneumonia [Unknown]
